FAERS Safety Report 10877291 (Version 1)
Quarter: 2015Q1

REPORT INFORMATION
  Report Type: Report from Study
  Country: AU (occurrence: AU)
  Receive Date: 20150302
  Receipt Date: 20150302
  Transmission Date: 20150721
  Serious: Yes (Hospitalization)
  Sender: FDA-Public Use
  Company Number: AU-SA-2015SA023184

PATIENT
  Sex: Male

DRUGS (2)
  1. LANTUS [Suspect]
     Active Substance: INSULIN GLARGINE
     Dosage: DOSE: 24 UNITS AM AND 24 UNITS PM
     Route: 065
     Dates: start: 20090615
  2. NOVORAPID [Suspect]
     Active Substance: INSULIN ASPART
     Route: 065

REACTIONS (5)
  - Joint dislocation [Not Recovered/Not Resolved]
  - Tibia fracture [Not Recovered/Not Resolved]
  - Drug administration error [Unknown]
  - Lower limb fracture [Not Recovered/Not Resolved]
  - Blood glucose increased [Not Recovered/Not Resolved]

NARRATIVE: CASE EVENT DATE: 2010
